FAERS Safety Report 7332907-X (Version None)
Quarter: 2011Q1

REPORT INFORMATION
  Report Type: 
  Country: None (occurrence: None)
  Receive Date: 20110304
  Receipt Date: 20110221
  Transmission Date: 20110831
  Serious: Yes (Hospitalization, Other)
  Sender: FDA-Public Use
  Company Number: PHHY2010BR37494

PATIENT
  Sex: Female

DRUGS (3)
  1. LIPITOR [Concomitant]
     Indication: BLOOD CHOLESTEROL
     Dosage: 1 DF, QD
     Route: 048
  2. DIOVAN [Suspect]
     Dosage: 80 MG, 1 TABLET DAILY
  3. DIOVAN [Suspect]
     Indication: HYPERTENSION
     Dosage: 2 DF, QD

REACTIONS (4)
  - GAIT DISTURBANCE [None]
  - FALL [None]
  - INFARCTION [None]
  - LOWER LIMB FRACTURE [None]
